FAERS Safety Report 11277995 (Version 2)
Quarter: 2015Q3

REPORT INFORMATION
  Report Type: Spontaneous
  Country: IE (occurrence: IE)
  Receive Date: 20150717
  Receipt Date: 20150824
  Transmission Date: 20151125
  Serious: Yes (Hospitalization, Other)
  Sender: FDA-Public Use
  Company Number: IE-AMGEN-IRLSP2015069972

PATIENT
  Age: 57 Year
  Sex: Female

DRUGS (6)
  1. PROLIA [Suspect]
     Active Substance: DENOSUMAB
     Indication: OSTEOPENIA
     Dosage: 60 MG, Q6MO
     Route: 065
     Dates: start: 2012
  2. NUSEALS ASPIRN [Concomitant]
  3. SIMVASTATIN. [Concomitant]
     Active Substance: SIMVASTATIN
  4. OMESAR [Concomitant]
     Active Substance: OLMESARTAN MEDOXOMIL
  5. ZOLTAN [Concomitant]
  6. CALCIUM [Concomitant]
     Active Substance: CALCIUM

REACTIONS (9)
  - Coronary artery disease [Unknown]
  - Pericarditis [Unknown]
  - Neurosis [Unknown]
  - Myocarditis [Not Recovered/Not Resolved]
  - Off label use [Unknown]
  - Anxiety [Unknown]
  - Disability [Unknown]
  - Troponin increased [Unknown]
  - Body mass index decreased [Unknown]

NARRATIVE: CASE EVENT DATE: 2015
